FAERS Safety Report 21032284 (Version 3)
Quarter: 2023Q2

REPORT INFORMATION
  Report Type: Report from Study
  Country: US (occurrence: US)
  Receive Date: 20220701
  Receipt Date: 20230629
  Transmission Date: 20230721
  Serious: Yes (Hospitalization)
  Sender: FDA-Public Use
  Company Number: US-ARGENX-2022-ARGX-US001063

PATIENT
  Age: 64 Year
  Sex: Female

DRUGS (1)
  1. VYVGART [Suspect]
     Active Substance: EFGARTIGIMOD ALFA-FCAB
     Indication: Myasthenia gravis
     Dosage: UNK
     Dates: start: 20220308

REACTIONS (4)
  - Thymectomy [Unknown]
  - Vascular graft [Unknown]
  - Tremor [Unknown]
  - Tremor [Unknown]

NARRATIVE: CASE EVENT DATE: 20220419
